FAERS Safety Report 9283655 (Version 2)
Quarter: 2013Q2

REPORT INFORMATION
  Report Type: Spontaneous
  Country: GB (occurrence: None)
  Receive Date: 20130506
  Receipt Date: 20130506
  Transmission Date: 20140414
  Serious: Yes (Disabling)
  Sender: FDA-Public Use
  Company Number: AUR-APL-2013-03547

PATIENT
  Age: 19 Year
  Sex: Male

DRUGS (2)
  1. AMOXICILLIN (AMOXICILLIN) [Suspect]
     Indication: PRODUCT USED FOR UNKNOWN INDICATION
     Dates: start: 20130411
  2. ERYTHROMYCIN (ERYTHROMYCIN) [Concomitant]

REACTIONS (1)
  - Eczema [None]
